FAERS Safety Report 9082553 (Version 3)
Quarter: 2013Q1

REPORT INFORMATION
  Report Type: Spontaneous
  Country: JP (occurrence: JP)
  Receive Date: 20130131
  Receipt Date: 20130326
  Transmission Date: 20140127
  Serious: Yes (Hospitalization, Other)
  Sender: FDA-Public Use
  Company Number: JP-009507513-1301JPN010000

PATIENT
  Age: 65 Year
  Sex: Female
  Weight: 50 kg

DRUGS (6)
  1. PEGINTRON [Suspect]
     Indication: CHRONIC HEPATITIS C
     Dosage: 1.5 MICROGRAM PER KILOGRAM, QW
     Route: 058
     Dates: start: 20121102, end: 20130104
  2. REBETOL [Suspect]
     Indication: CHRONIC HEPATITIS C
     Dosage: 600 MG, QD
     Route: 048
     Dates: start: 20121102, end: 20121213
  3. REBETOL [Suspect]
     Dosage: 400 MG, QD
     Route: 048
     Dates: start: 20121214, end: 20121220
  4. TELAVIC [Suspect]
     Indication: CHRONIC HEPATITIS C
     Dosage: 1500 MG, QD
     Route: 048
     Dates: start: 20121102, end: 20130106
  5. ALOSITOL [Concomitant]
     Dosage: 200 MG, QD
     Route: 048
     Dates: start: 20121106, end: 20121120
  6. FERO-GRADUMET [Concomitant]
     Dosage: 200 MG, QD
     Route: 048
     Dates: start: 20121130, end: 20130117

REACTIONS (2)
  - Anaemia [Recovering/Resolving]
  - Retinal haemorrhage [Recovering/Resolving]
